FAERS Safety Report 8622259 (Version 2)
Quarter: 2013Q3

REPORT INFORMATION
  Report Type: Report from Study
  Country: US (occurrence: US)
  Receive Date: 20120619
  Receipt Date: 20130920
  Transmission Date: 20140515
  Serious: Yes (Other)
  Sender: FDA-Public Use
  Company Number: US-ROCHE-1077773

PATIENT
  Sex: 0

DRUGS (2)
  1. RITUXIMAB [Suspect]
     Indication: CHRONIC LYMPHOCYTIC LEUKAEMIA
     Route: 065
  2. BENDAMUSTINE [Suspect]
     Indication: CHRONIC LYMPHOCYTIC LEUKAEMIA
     Route: 065

REACTIONS (27)
  - Upper respiratory tract infection [Unknown]
  - Abdominal pain [Unknown]
  - Rash [Unknown]
  - Sepsis [Unknown]
  - Fatigue [Unknown]
  - Weight decreased [Unknown]
  - Herpes zoster [Unknown]
  - Fungal sepsis [Unknown]
  - Pneumonia [Unknown]
  - Pyrexia [Unknown]
  - Hypertension [Unknown]
  - Asthenia [Unknown]
  - Dyspnoea [Unknown]
  - Pleural effusion [Unknown]
  - Pulmonary function test decreased [Unknown]
  - Thrombocytopenia [Unknown]
  - Pancytopenia [Unknown]
  - Anaemia [Unknown]
  - Neutropenia [Unknown]
  - Bone marrow failure [Unknown]
  - Haemolysis [Unknown]
  - Nausea [Unknown]
  - Vomiting [Unknown]
  - Constipation [Unknown]
  - Mucosal inflammation [Unknown]
  - Diarrhoea [Unknown]
  - Haematotoxicity [Unknown]
